FAERS Safety Report 21499064 (Version 1)
Quarter: 2022Q4

REPORT INFORMATION
  Report Type: Spontaneous
  Country: BE (occurrence: BE)
  Receive Date: 20221024
  Receipt Date: 20221024
  Transmission Date: 20230113
  Serious: Yes (Hospitalization)
  Sender: FDA-Public Use
  Company Number: BE-MYLANLABS-2022M1117284

PATIENT
  Age: 42 Year
  Sex: Male

DRUGS (7)
  1. VALPROIC ACID [Interacting]
     Active Substance: VALPROIC ACID
     Indication: Prophylaxis
     Dosage: 500 MILLIGRAM, BID
     Route: 065
  2. METFORMIN [Suspect]
     Active Substance: METFORMIN HYDROCHLORIDE
     Indication: Type 2 diabetes mellitus
     Dosage: 850 MILLIGRAM
     Route: 065
  3. ATORVASTATIN [Suspect]
     Active Substance: ATORVASTATIN
     Indication: Hypertriglyceridaemia
     Dosage: 20 MILLIGRAM, QD
     Route: 065
  4. INSULIN GLARGINE [Suspect]
     Active Substance: INSULIN GLARGINE
     Indication: Hypertriglyceridaemia
     Dosage: UNK
     Route: 065
  5. FENOFIBRATE [Suspect]
     Active Substance: FENOFIBRATE
     Indication: Hypertriglyceridaemia
     Dosage: 145 MILLIGRAM, QD
     Route: 065
  6. DEXTROSE [Suspect]
     Active Substance: DEXTROSE
     Indication: Hypertriglyceridaemia
     Dosage: UNK
     Route: 065
  7. ASPIRIN [Concomitant]
     Active Substance: ASPIRIN
     Indication: Product used for unknown indication
     Dosage: 80 MILLIGRAM
     Route: 065

REACTIONS (4)
  - Drug-disease interaction [Unknown]
  - Hypertriglyceridaemia [Recovered/Resolved]
  - Pancreatitis acute [Unknown]
  - Drug ineffective [Unknown]
